FAERS Safety Report 9215974 (Version 1)
Quarter: 2013Q2

REPORT INFORMATION
  Report Type: Spontaneous
  Country: US (occurrence: US)
  Receive Date: 20130408
  Receipt Date: 20130408
  Transmission Date: 20140414
  Serious: Yes (Other)
  Sender: FDA-Public Use
  Company Number: US-JNJFOC-20130318254

PATIENT
  Sex: Female
  Weight: 91.63 kg

DRUGS (6)
  1. DURAGESIC [Suspect]
     Indication: PAIN
     Route: 062
     Dates: start: 2012
  2. DURAGESIC [Suspect]
     Indication: PAIN
     Route: 062
     Dates: start: 1997
  3. DURAGESIC [Suspect]
     Indication: PAIN
     Route: 062
     Dates: start: 2012, end: 2012
  4. DURAGESIC [Suspect]
     Indication: PAIN
     Route: 062
     Dates: start: 2012, end: 2012
  5. DURAGESIC [Suspect]
     Indication: PAIN
     Route: 062
     Dates: start: 2012, end: 2012
  6. OXYCODONE [Concomitant]
     Indication: PAIN
     Dosage: 5 MG TABLETS AT A DOSE OF 10 MG/ AS NEEDED
     Route: 048

REACTIONS (5)
  - Weight decreased [Unknown]
  - Wrong technique in drug usage process [Unknown]
  - Drug ineffective [Recovered/Resolved]
  - Product quality issue [Unknown]
  - Product quality issue [Unknown]
